FAERS Safety Report 5661375-9 (Version None)
Quarter: 2008Q1

REPORT INFORMATION
  Report Type: 
  Country: None (occurrence: None)
  Receive Date: 20080311
  Receipt Date: 20080229
  Transmission Date: 20080703
  Serious: Yes (Other)
  Sender: FDA-Public Use
  Company Number: JP-PFIZER INC-2008018770

PATIENT
  Age: 17 Year
  Sex: Male

DRUGS (11)
  1. GENOTROPIN [Suspect]
     Indication: RENAL FAILURE CHRONIC
     Route: 058
     Dates: start: 20000531, end: 20011001
  2. GENOTROPIN [Suspect]
     Indication: DWARFISM
     Dosage: DAILY DOSE:.85MG
     Route: 058
     Dates: start: 20011001, end: 20020610
  3. GENOTROPIN [Suspect]
     Dosage: DAILY DOSE:1MG
     Route: 058
     Dates: start: 20020611, end: 20031201
  4. GENOTROPIN [Suspect]
     Dosage: DAILY DOSE:1.2MG
     Route: 058
     Dates: start: 20031201, end: 20040901
  5. GENOTROPIN [Suspect]
     Dosage: DAILY DOSE:1.3MG
     Route: 058
     Dates: start: 20040901, end: 20050101
  6. GENOTROPIN [Suspect]
     Dosage: DAILY DOSE:1.4MG
     Route: 058
     Dates: start: 20050101, end: 20080129
  7. KREMEZIN [Concomitant]
     Route: 048
  8. SODIUM BICARBONATE [Concomitant]
  9. CALTAN [Concomitant]
     Route: 048
  10. FERROUS FUMARATE [Concomitant]
     Route: 048
  11. ALFAROL [Concomitant]
     Route: 048

REACTIONS (1)
  - HALLUCINATION [None]
